FAERS Safety Report 15693184 (Version 3)
Quarter: 2019Q1

REPORT INFORMATION
  Report Type: Spontaneous
  Country: ES (occurrence: ES)
  Receive Date: 20181206
  Receipt Date: 20190128
  Transmission Date: 20190417
  Serious: Yes (Hospitalization, Other)
  Sender: FDA-Public Use
  Company Number: ES-AUROBINDO-AUR-APL-2018-058629

PATIENT
  Age: 38 Year
  Sex: Female
  Weight: 63.8 kg

DRUGS (5)
  1. ARIPIPRAZOLE. [Suspect]
     Active Substance: ARIPIPRAZOLE
     Indication: PRODUCT USED FOR UNKNOWN INDICATION
     Dosage: 400 MILLIGRAM, 1 MONTH
     Route: 030
     Dates: start: 20150616, end: 20150915
  2. ARIPIPRAZOLE. [Suspect]
     Active Substance: ARIPIPRAZOLE
     Dosage: 300 MILLIGRAM, 1 MONTH
     Route: 030
     Dates: start: 20160614
  3. ARIPIPRAZOLE. [Suspect]
     Active Substance: ARIPIPRAZOLE
     Dosage: 200 MILLIGRAM, 1 MONTH
     Route: 030
     Dates: start: 20160614
  4. ARIPIPRAZOLE TABLETS [Suspect]
     Active Substance: ARIPIPRAZOLE
     Indication: PRODUCT USED FOR UNKNOWN INDICATION
     Dosage: 15 MILLIGRAM, ONCE A DAY
     Route: 048
     Dates: start: 20150610, end: 20150630
  5. ARIPIPRAZOLE. [Suspect]
     Active Substance: ARIPIPRAZOLE
     Indication: SCHIZOPHRENIA
     Dosage: 300 MILLIGRAM, 1 MONTH
     Route: 030
     Dates: end: 20160513

REACTIONS (5)
  - Prescribed underdose [Unknown]
  - Ill-defined disorder [Unknown]
  - Drug intolerance [Recovered/Resolved]
  - Weight increased [Not Recovered/Not Resolved]
  - Hospitalisation [Unknown]

NARRATIVE: CASE EVENT DATE: 20150610
